FAERS Safety Report 6205051-2 (Version None)
Quarter: 2009Q2

REPORT INFORMATION
  Report Type: 
  Country: None (occurrence: None)
  Receive Date: 20090527
  Receipt Date: 20090217
  Transmission Date: 20091009
  Serious: No
  Sender: FDA-Public Use
  Company Number: US-ABBOTT-09P-163-0558020-00

PATIENT
  Sex: Female

DRUGS (1)
  1. SIMCOR [Suspect]
     Indication: DRUG USE FOR UNKNOWN INDICATION
     Dosage: USING SAMPLES RECEIVED FROM MD OFFICE, 500/20MG QHS
     Dates: start: 20090201

REACTIONS (2)
  - PRURITUS [None]
  - RASH [None]
